FAERS Safety Report 23106839 (Version 1)
Quarter: 2023Q4

REPORT INFORMATION
  Report Type: Spontaneous
  Country: BR (occurrence: None)
  Receive Date: 20231026
  Receipt Date: 20231026
  Transmission Date: 20240109
  Serious: Yes (Death, Hospitalization, Other)
  Sender: FDA-Public Use
  Company Number: BR-NATCOUSA-2023-NATCOUSA-000176

PATIENT
  Age: 40 Year
  Sex: Female
  Weight: 79.4 kg

DRUGS (3)
  1. CHLOROQUINE PHOSPHATE [Suspect]
     Active Substance: CHLOROQUINE PHOSPHATE
     Indication: Plasmodium vivax infection
     Dosage: 600 MG-FIRST DAY
     Route: 065
     Dates: start: 20191213
  2. PRIMAQUINE [Suspect]
     Active Substance: PRIMAQUINE
     Indication: Plasmodium vivax infection
     Dosage: 30  MG/DAY
     Route: 065
     Dates: start: 20191213
  3. CHLOROQUINE PHOSPHATE [Suspect]
     Active Substance: CHLOROQUINE PHOSPHATE
     Indication: Plasmodium vivax infection
     Dosage: 450 MG-SECOND AND THIRD DAYS
     Route: 065

REACTIONS (2)
  - Acute respiratory distress syndrome [Fatal]
  - Cardiac arrest [Fatal]

NARRATIVE: CASE EVENT DATE: 20191216
